FAERS Safety Report 5968205-6 (Version None)
Quarter: 2008Q4

REPORT INFORMATION
  Report Type: 
  Country: None (occurrence: None)
  Receive Date: 20081126
  Receipt Date: 20081120
  Transmission Date: 20090506
  Serious: Yes (Hospitalization)
  Sender: FDA-Public Use
  Company Number: A0757437A

PATIENT

DRUGS (1)
  1. EPZICOM [Suspect]
     Indication: HIV INFECTION

REACTIONS (4)
  - CARDIOMYOPATHY [None]
  - HEPATITIS [None]
  - LACTIC ACIDOSIS [None]
  - RENAL IMPAIRMENT [None]
